FAERS Safety Report 8611183-1 (Version None)
Quarter: 2012Q3

REPORT INFORMATION
  Report Type: 
  Country: None (occurrence: None)
  Receive Date: 20120822
  Receipt Date: 20120813
  Transmission Date: 20120928
  Serious: No
  Sender: FDA-Public Use
  Company Number: US-BAYER-2012-083370

PATIENT
  Age: 80 Year
  Sex: Female
  Weight: 91 kg

DRUGS (7)
  1. STERIOD INJECTIONS [Concomitant]
  2. VICODIN [Concomitant]
  3. PEPCID [Concomitant]
  4. AMLODIPINE [Concomitant]
  5. HYDROCHLOROTHIAZIDE [Concomitant]
  6. ALEVE (CAPLET) [Suspect]
     Indication: ARTHRITIS
     Dosage: 2 DF, PRN
     Route: 048
     Dates: start: 20090101, end: 20120812
  7. COTIZONE INJECTION [Concomitant]

REACTIONS (3)
  - FLUID RETENTION [None]
  - BACK PAIN [None]
  - BLOOD PRESSURE INCREASED [None]
